FAERS Safety Report 24302580 (Version 2)
Quarter: 2024Q4

REPORT INFORMATION
  Report Type: Report from Study
  Country: JP (occurrence: JP)
  Receive Date: 20240910
  Receipt Date: 20241011
  Transmission Date: 20250115
  Serious: Yes (Other)
  Sender: OTSUKA
  Company Number: JP-OTSUKA-2024_024490

PATIENT
  Age: 79 Year
  Sex: Male
  Weight: 58.8 kg

DRUGS (47)
  1. TOLVAPTAN [Suspect]
     Active Substance: TOLVAPTAN
     Indication: Cardiac failure
     Dosage: 8 MG/DAY, ONCE DAILY
     Route: 041
     Dates: start: 20240730, end: 20240730
  2. TOLVAPTAN [Suspect]
     Active Substance: TOLVAPTAN
     Indication: Fluid retention
  3. SAMSCA [Suspect]
     Active Substance: TOLVAPTAN
     Indication: Cardiac failure
     Dosage: 3.75 MG/DAY
     Route: 048
     Dates: start: 20240724, end: 20240730
  4. SAMSCA [Suspect]
     Active Substance: TOLVAPTAN
     Indication: Fluid retention
  5. TOLVAPTAN [Suspect]
     Active Substance: TOLVAPTAN
     Indication: Product used for unknown indication
     Dosage: 15 MG/DAY
     Route: 048
     Dates: start: 20240731, end: 20240810
  6. TOLVAPTAN [Suspect]
     Active Substance: TOLVAPTAN
     Dosage: 7.5 MG/DAY
     Route: 048
     Dates: start: 20240811
  7. SPIRONOLACTONE [Concomitant]
     Active Substance: SPIRONOLACTONE
     Indication: Product used for unknown indication
     Dosage: 25 MG/DAY
     Route: 048
     Dates: end: 20240730
  8. SPIRONOLACTONE [Concomitant]
     Active Substance: SPIRONOLACTONE
     Dosage: 100 MG/DAY
     Route: 048
     Dates: start: 20240731, end: 20240810
  9. SPIRONOLACTONE [Concomitant]
     Active Substance: SPIRONOLACTONE
     Dosage: 50 MG/DAY
     Route: 048
     Dates: start: 20240811
  10. FUROSEMIDE [Concomitant]
     Active Substance: FUROSEMIDE
     Indication: Product used for unknown indication
     Dosage: 100 MG/DAY
     Route: 040
     Dates: start: 20240730, end: 20240730
  11. CANRENOATE POTASSIUM [Concomitant]
     Active Substance: CANRENOATE POTASSIUM
     Indication: Product used for unknown indication
     Dosage: 100 MG/DAY
     Route: 040
     Dates: start: 20240730, end: 20240730
  12. FUROSEMIDE [Concomitant]
     Active Substance: FUROSEMIDE
     Indication: Product used for unknown indication
     Dosage: 120 MG/DAY
     Route: 050
     Dates: start: 20240730, end: 20240730
  13. FUROSEMIDE [Concomitant]
     Active Substance: FUROSEMIDE
     Dosage: 280 MG/DAY
     Route: 050
     Dates: start: 20240731, end: 20240805
  14. FUROSEMIDE [Concomitant]
     Active Substance: FUROSEMIDE
     Dosage: 200 MG/DAY
     Route: 050
     Dates: start: 20240806, end: 20240806
  15. FUROSEMIDE [Concomitant]
     Active Substance: FUROSEMIDE
     Dosage: 100 MG/DAY
     Route: 050
     Dates: start: 20240807, end: 20240807
  16. TRICHLORMETHIAZIDE [Concomitant]
     Active Substance: TRICHLORMETHIAZIDE
     Indication: Product used for unknown indication
     Dosage: 2 MG/DAY
     Route: 048
     Dates: start: 20240731, end: 20240808
  17. TORSEMIDE [Concomitant]
     Active Substance: TORSEMIDE
     Indication: Product used for unknown indication
     Dosage: 8 MG/DAY
     Route: 048
     Dates: start: 20240808
  18. ACETAZOLAMIDE [Concomitant]
     Active Substance: ACETAZOLAMIDE
     Indication: Product used for unknown indication
     Dosage: 250 MG/DAY
     Route: 048
     Dates: start: 20240804, end: 20240808
  19. ATORVASTATIN CALCIUM [Concomitant]
     Active Substance: ATORVASTATIN CALCIUM
     Indication: Product used for unknown indication
     Dosage: UNK
     Route: 048
     Dates: end: 20240730
  20. ATORVASTATIN CALCIUM [Concomitant]
     Active Substance: ATORVASTATIN CALCIUM
     Indication: Prophylaxis
     Dosage: UNK
     Route: 048
     Dates: start: 20240803
  21. PLAVIX [Concomitant]
     Active Substance: CLOPIDOGREL BISULFATE
     Indication: Product used for unknown indication
     Dosage: UNK
     Route: 048
     Dates: end: 20240730
  22. PLAVIX [Concomitant]
     Active Substance: CLOPIDOGREL BISULFATE
     Indication: Prophylaxis
  23. JARDIANCE [Concomitant]
     Active Substance: EMPAGLIFLOZIN
     Indication: Cardiac failure
     Dosage: UNK
     Route: 048
     Dates: end: 20240730
  24. JARDIANCE [Concomitant]
     Active Substance: EMPAGLIFLOZIN
     Indication: Product used for unknown indication
  25. BISOPROLOL FUMARATE [Concomitant]
     Active Substance: BISOPROLOL FUMARATE
     Indication: Cardiac failure
     Dosage: UNK
     Route: 048
     Dates: end: 20240730
  26. BISOPROLOL FUMARATE [Concomitant]
     Active Substance: BISOPROLOL FUMARATE
     Indication: Product used for unknown indication
  27. VIBEGRON [Concomitant]
     Active Substance: VIBEGRON
     Indication: Hypertonic bladder
     Dosage: UNK
     Route: 048
     Dates: end: 20240830
  28. VIBEGRON [Concomitant]
     Active Substance: VIBEGRON
     Dosage: UNK
     Route: 048
     Dates: start: 20240802
  29. ADALAT [Concomitant]
     Active Substance: NIFEDIPINE
     Indication: Product used for unknown indication
     Dosage: UNK
     Route: 048
     Dates: end: 20240730
  30. MACROGOL 4000;POTASSIUM CHLORIDE;SODIUM BICARBONATE;SODIUM CHLORIDE [Concomitant]
     Indication: Prophylaxis
     Dosage: UNK
     Route: 048
     Dates: end: 20240730
  31. ISOSORBIDE DINITRATE [Concomitant]
     Active Substance: ISOSORBIDE DINITRATE
     Indication: Product used for unknown indication
     Dosage: UNK
     Route: 062
     Dates: end: 20240730
  32. EDOXABAN TOSYLATE [Concomitant]
     Active Substance: EDOXABAN TOSYLATE
     Indication: Product used for unknown indication
     Dosage: UNK
     Route: 048
     Dates: start: 20240724, end: 20240730
  33. TANATRIL [Concomitant]
     Indication: Cardiac failure
     Dosage: UNK
     Route: 048
     Dates: start: 20240724, end: 20240730
  34. TANATRIL [Concomitant]
     Indication: Product used for unknown indication
  35. HUMULIN R [Concomitant]
     Active Substance: INSULIN HUMAN
     Indication: Product used for unknown indication
     Dosage: UNK
     Route: 050
     Dates: start: 20240730, end: 20240730
  36. DEXTROSE [Concomitant]
     Active Substance: DEXTROSE MONOHYDRATE
     Indication: Product used for unknown indication
     Dosage: UNK
     Route: 050
     Dates: start: 20240730, end: 20240730
  37. LASCUFLOXACIN HYDROCHLORIDE [Concomitant]
     Active Substance: LASCUFLOXACIN HYDROCHLORIDE
     Indication: Product used for unknown indication
     Dosage: UNK
     Route: 048
     Dates: start: 20240725, end: 20240730
  38. CEFTRIAXONE SODIUM [Concomitant]
     Active Substance: CEFTRIAXONE SODIUM
     Indication: Product used for unknown indication
     Dosage: UNK
     Route: 050
     Dates: start: 20240730, end: 20240802
  39. MEROPENEM [Concomitant]
     Active Substance: MEROPENEM
     Indication: Product used for unknown indication
     Dosage: UNK
     Route: 050
     Dates: start: 20240803
  40. HEPARIN SODIUM [Concomitant]
     Active Substance: HEPARIN SODIUM
     Indication: Product used for unknown indication
     Dosage: UNK
     Route: 050
     Dates: start: 20240730
  41. HEPARIN SODIUM [Concomitant]
     Active Substance: HEPARIN SODIUM
     Indication: Prophylaxis
  42. WARFARIN POTASSIUM [Concomitant]
     Active Substance: WARFARIN POTASSIUM
     Indication: Product used for unknown indication
     Dosage: UNK
     Route: 048
     Dates: start: 20240808
  43. WARFARIN POTASSIUM [Concomitant]
     Active Substance: WARFARIN POTASSIUM
     Indication: Prophylaxis
  44. LANSOPRAZOLE [Concomitant]
     Active Substance: LANSOPRAZOLE
     Indication: Prophylaxis
     Dosage: UNK
     Route: 048
     Dates: start: 20240731
  45. BISOPROLOL [Concomitant]
     Active Substance: BISOPROLOL\BISOPROLOL FUMARATE
     Indication: Cardiac failure
     Dosage: UNK
     Route: 062
     Dates: start: 20240731
  46. BISOPROLOL [Concomitant]
     Active Substance: BISOPROLOL\BISOPROLOL FUMARATE
     Indication: Product used for unknown indication
  47. FEBUXOSTAT [Concomitant]
     Active Substance: FEBUXOSTAT
     Indication: Product used for unknown indication
     Dosage: UNK
     Route: 048
     Dates: start: 20240803

REACTIONS (4)
  - Hypotension [Recovering/Resolving]
  - Malnutrition [Unknown]
  - Drug monitoring procedure incorrectly performed [Unknown]
  - Underdose [Unknown]

NARRATIVE: CASE EVENT DATE: 20240724
